FAERS Safety Report 11353751 (Version 1)
Quarter: 2015Q3

REPORT INFORMATION
  Report Type: Spontaneous
  Country: US (occurrence: US)
  Receive Date: 20150807
  Receipt Date: 20150807
  Transmission Date: 20151125
  Serious: No
  Sender: FDA-Public Use
  Company Number: US-JNJFOC-20150700198

PATIENT
  Sex: Female

DRUGS (2)
  1. WOMENS ROGAINE [Suspect]
     Active Substance: MINOXIDIL
     Route: 050
  2. WOMENS ROGAINE [Suspect]
     Active Substance: MINOXIDIL
     Indication: ACCIDENTAL EXPOSURE TO PRODUCT
     Dosage: SOME OF THE PRODUCT ONCE LAST (29-JUN-2015) NIGHT
     Route: 050
     Dates: start: 20150629

REACTIONS (3)
  - Wrong technique in product usage process [Unknown]
  - Accidental exposure to product [Unknown]
  - Product dropper issue [Unknown]

NARRATIVE: CASE EVENT DATE: 20150629
